FAERS Safety Report 5524288-9 (Version None)
Quarter: 2007Q4

REPORT INFORMATION
  Report Type: 
  Country: None (occurrence: None)
  Receive Date: 20071121
  Receipt Date: 20071114
  Transmission Date: 20080405
  Serious: Yes (Hospitalization, Other)
  Sender: FDA-Public Use
  Company Number: IL-PFIZER INC-2007094023

PATIENT
  Age: 72 Year
  Sex: Female

DRUGS (4)
  1. CAMPTOSAR [Suspect]
     Indication: PANCREATIC CARCINOMA
     Dosage: DAILY DOSE:160MG
     Route: 042
     Dates: start: 20071008, end: 20071009
  2. CAMPTOSAR [Suspect]
     Indication: METASTASES TO LUNG
     Dosage: DAILY DOSE:160MG
     Route: 042
     Dates: start: 20071028, end: 20071029
  3. VASODIP [Concomitant]
     Indication: HYPERTENSION
  4. NORMOPRESAN [Concomitant]
     Indication: HYPERTENSION

REACTIONS (5)
  - HYPERTENSION [None]
  - INTESTINAL OBSTRUCTION [None]
  - NAUSEA [None]
  - OEDEMA [None]
  - VOMITING [None]
